FAERS Safety Report 7491650-7 (Version None)
Quarter: 2011Q2

REPORT INFORMATION
  Report Type: 
  Country: None (occurrence: None)
  Receive Date: 20110519
  Receipt Date: 20110513
  Transmission Date: 20111010
  Serious: Yes (Hospitalization)
  Sender: FDA-Public Use
  Company Number: US-GILEAD-2011-0039165

PATIENT
  Sex: Female

DRUGS (7)
  1. LETAIRIS [Suspect]
     Indication: PULMONARY HYPERTENSION
     Route: 048
     Dates: start: 20090701
  2. LETAIRIS [Suspect]
     Indication: HEART VALVE REPLACEMENT
  3. REMODULIN [Concomitant]
  4. ADCIRCA [Concomitant]
  5. LETAIRIS [Suspect]
     Indication: TRICUSPID VALVE REPAIR
  6. LETAIRIS [Suspect]
     Indication: ATRIAL SEPTAL DEFECT
  7. LETAIRIS [Suspect]
     Indication: MITRAL VALVE DISEASE

REACTIONS (1)
  - RESPIRATORY DISTRESS [None]
